FAERS Safety Report 6580634-9 (Version None)
Quarter: 2010Q1

REPORT INFORMATION
  Report Type: 
  Country: None (occurrence: None)
  Receive Date: 20100203
  Receipt Date: 20100119
  Transmission Date: 20100710
  Serious: Yes (Other)
  Sender: FDA-Public Use
  Company Number: 2009-4021

PATIENT
  Age: 23 Year
  Sex: Female
  Weight: 55 kg

DRUGS (2)
  1. DYSPORT [Suspect]
     Indication: SKIN WRINKLING
     Dosage: (112 UNITS, SINGLE CYCLE THERAPY)
     Dates: start: 20090914, end: 20090914
  2. KRAVIA (ALL OTHER THERAPEUTIC PRODUCTS) [Concomitant]

REACTIONS (5)
  - DYSPNOEA [None]
  - FACIAL PARESIS [None]
  - HEADACHE [None]
  - SPEECH DISORDER [None]
  - SWOLLEN TONGUE [None]
